FAERS Safety Report 6072399-4 (Version None)
Quarter: 2009Q1

REPORT INFORMATION
  Report Type: 
  Country: None (occurrence: None)
  Receive Date: 20090210
  Receipt Date: 20090204
  Transmission Date: 20090719
  Serious: No
  Sender: FDA-Public Use
  Company Number: US-JNJFOC-20090201541

PATIENT
  Sex: Female
  Weight: 77.11 kg

DRUGS (2)
  1. FENTANYL TRANSDERMAL SYSTEM [Suspect]
     Indication: BACK PAIN
     Route: 062
  2. UNSPECIFIED PAIN PUMP [Concomitant]
     Indication: PAIN
     Route: 042

REACTIONS (2)
  - APPLICATION SITE VESICLES [None]
  - INAPPROPRIATE SCHEDULE OF DRUG ADMINISTRATION [None]
